FAERS Safety Report 4699992-5 (Version None)
Quarter: 2005Q2

REPORT INFORMATION
  Report Type: 
  Country: None (occurrence: None)
  Receive Date: 20050623
  Receipt Date: 20050609
  Transmission Date: 20051028
  Serious: Yes (Hospitalization)
  Sender: FDA-Public Use
  Company Number: 2005BI007770

PATIENT
  Sex: Female

DRUGS (4)
  1. AVONEX [Suspect]
     Indication: MULTIPLE SCLEROSIS
     Dosage: 30 UG; QW;IM
     Route: 030
     Dates: start: 20000201
  2. PAXIL [Concomitant]
  3. BACLOFEN [Concomitant]
  4. MAXZIDE [Concomitant]

REACTIONS (2)
  - DIFFICULTY IN WALKING [None]
  - FATIGUE [None]
